FAERS Safety Report 5264125-3 (Version None)
Quarter: 2007Q1

REPORT INFORMATION
  Report Type: 
  Country: None (occurrence: None)
  Receive Date: 20070313
  Receipt Date: 20070301
  Transmission Date: 20070707
  Serious: Yes (Other)
  Sender: FDA-Public Use
  Company Number: AU-PFIZER INC-2007011462

PATIENT
  Sex: Male

DRUGS (8)
  1. CABASER [Suspect]
     Indication: PARKINSON'S DISEASE
     Route: 048
     Dates: start: 20010412, end: 20050805
  2. CABASER [Suspect]
     Indication: RESTLESS LEGS SYNDROME
  3. SINEMET [Concomitant]
     Route: 048
  4. SINEMET CR [Concomitant]
     Route: 048
  5. KARVEA [Concomitant]
     Route: 048
  6. VITAMIN E [Concomitant]
  7. TRITACE [Concomitant]
  8. ZOCOR [Concomitant]

REACTIONS (4)
  - BRONCHIAL DISORDER [None]
  - DYSPNOEA EXERTIONAL [None]
  - FIBROSIS [None]
  - PLEURAL EFFUSION [None]
